FAERS Safety Report 9424748 (Version 1)
Quarter: 2013Q3

REPORT INFORMATION
  Report Type: Report from Study
  Country: US (occurrence: US)
  Receive Date: 20130729
  Receipt Date: 20130729
  Transmission Date: 20140515
  Serious: Yes (Other)
  Sender: FDA-Public Use
  Company Number: US-BAYER-2013-087401

PATIENT
  Sex: Female

DRUGS (5)
  1. ACETYLSALICYLIC ACID({=100 MG) [Suspect]
     Indication: ANTIPLATELET THERAPY
     Dosage: PRE-PROCEDURAL ANTIPLATELET THERAPY: DAILY DOSE 325 MG
     Route: 048
  2. ACETYLSALICYLIC ACID({=100 MG) [Interacting]
     Indication: ANTIPLATELET THERAPY
     Dosage: POST-PROCEDURAL ANTIPLATELET THERAPY: DAILY DOSE 325 MG
     Route: 048
  3. PRASUGREL [Interacting]
     Indication: ANTIPLATELET THERAPY
     Dosage: PRE-PROCEDURAL ANTIPLATELET THERAPY: 60 MG, ONCE, LOAD
     Route: 048
  4. PRASUGREL [Interacting]
     Indication: ANTIPLATELET THERAPY
     Dosage: POST-PROCEDURAL ANTIPLATELET THERAPY: DAILY DOSE 10 MG
     Route: 048
  5. CLOPIDOGREL [Interacting]

REACTIONS (7)
  - Vessel perforation [None]
  - Subarachnoid haemorrhage [None]
  - Intraventricular haemorrhage [None]
  - Hydrocephalus [None]
  - VIth nerve paralysis [Recovered/Resolved]
  - Labelled drug-drug interaction medication error [None]
  - Labelled drug-drug interaction medication error [None]
